FAERS Safety Report 4531315-4 (Version None)
Quarter: 2004Q4

REPORT INFORMATION
  Report Type: 
  Country: None (occurrence: None)
  Receive Date: 20041206
  Receipt Date: 20041007
  Transmission Date: 20050328
  Serious: No
  Sender: FDA-Public Use
  Company Number: USA041080487

PATIENT
  Age: 31 Year
  Sex: Male

DRUGS (2)
  1. CYMBALTA [Suspect]
     Dosage: 60 MG/1 DAY
  2. CLONOPIN (CLONAZEPAM) [Concomitant]

REACTIONS (2)
  - AGITATION [None]
  - INSOMNIA [None]
